FAERS Safety Report 8444544-4 (Version None)
Quarter: 2012Q2

REPORT INFORMATION
  Report Type: 
  Country: None (occurrence: None)
  Receive Date: 20120618
  Receipt Date: 20120607
  Transmission Date: 20120825
  Serious: Yes (Hospitalization)
  Sender: FDA-Public Use
  Company Number: US-UCBSA-058785

PATIENT
  Age: 68 Year
  Sex: Female
  Weight: 66 kg

DRUGS (2)
  1. KEPPRA [Suspect]
     Route: 048
  2. KEPPRA [Suspect]
     Indication: PROPHYLAXIS
     Route: 048
     Dates: start: 20110601

REACTIONS (5)
  - VISUAL FIELD DEFECT [None]
  - EYE PAIN [None]
  - DIZZINESS [None]
  - THROMBOSIS [None]
  - CEREBROVASCULAR ACCIDENT [None]
